FAERS Safety Report 15412679 (Version 1)
Quarter: 2018Q3

REPORT INFORMATION
  Report Type: Spontaneous
  Country: US (occurrence: US)
  Receive Date: 20180921
  Receipt Date: 20180921
  Transmission Date: 20181010
  Serious: No
  Sender: FDA-Public Use
  Company Number: US-FERRINGPH-2018FE02899

PATIENT
  Age: 74 Year
  Sex: Male
  Weight: 68.27 kg

DRUGS (3)
  1. CLENPIQ [Suspect]
     Active Substance: ANHYDROUS CITRIC ACID\MAGNESIUM OXIDE\SODIUM PICOSULFATE
     Indication: BOWEL PREPARATION
     Dosage: 2 BOTTLES, DAY BEFORE DOSING
     Route: 048
     Dates: start: 20180529, end: 20180530
  2. LAXATIVE [Suspect]
     Active Substance: UNSPECIFIED INGREDIENT
     Indication: BOWEL PREPARATION
     Dosage: UNK
     Route: 065
     Dates: start: 20180529
  3. DULOXETINE. [Concomitant]
     Active Substance: DULOXETINE
     Indication: PRODUCT USED FOR UNKNOWN INDICATION
     Dosage: 60 MG, IN THE MORNING
     Route: 065

REACTIONS (3)
  - Drug ineffective [Unknown]
  - Contraindicated product administered [Unknown]
  - Prescribed overdose [Unknown]

NARRATIVE: CASE EVENT DATE: 2018
